FAERS Safety Report 5732111-2 (Version None)
Quarter: 2008Q2

REPORT INFORMATION
  Report Type: 
  Country: None (occurrence: None)
  Receive Date: 20080506
  Receipt Date: 20080421
  Transmission Date: 20081010
  Serious: Yes (Hospitalization)
  Sender: FDA-Public Use
  Company Number: 2008S1006672

PATIENT
  Age: 67 Year
  Sex: Female

DRUGS (7)
  1. METOPROLOL TARTRATE [Suspect]
  2. TIAZAC [Suspect]
  3. ANTINEOPLASTIC AGENTS [Concomitant]
  4. LOSARTAN POTASSIUM [Concomitant]
  5. WARFARIN SODIUM [Concomitant]
  6. CLODRONIC ACID [Concomitant]
  7. DIURETICS [Concomitant]

REACTIONS (4)
  - CARDIOGENIC SHOCK [None]
  - DIZZINESS [None]
  - HEART RATE DECREASED [None]
  - NAUSEA [None]
